FAERS Safety Report 9496937 (Version 2)
Quarter: 2013Q3

REPORT INFORMATION
  Report Type: Report from Study
  Country: AU (occurrence: AU)
  Receive Date: 20130904
  Receipt Date: 20130919
  Transmission Date: 20140515
  Serious: Yes (Congenital Anomaly, Other)
  Sender: FDA-Public Use
  Company Number: AU-JNJFOC-20130816882

PATIENT
  Age: 0 Day
  Sex: Male
  Weight: 2.93 kg

DRUGS (6)
  1. TOPAMAX [Suspect]
     Indication: EPILEPSY
     Route: 064
  2. LEVETIRACETAM [Suspect]
     Indication: EPILEPSY
     Route: 064
  3. BRICANYL [Suspect]
     Indication: ASTHMA
     Route: 064
  4. SYMBICORT [Suspect]
     Indication: ASTHMA
     Route: 064
  5. ELEVIT [Concomitant]
     Indication: NUTRITIONAL SUPPLEMENTATION
     Route: 064
  6. FOLIC ACID [Concomitant]
     Indication: NUTRITIONAL SUPPLEMENTATION
     Route: 064

REACTIONS (3)
  - Hypospadias [Unknown]
  - Foetal exposure during pregnancy [Recovered/Resolved]
  - Exposure during breast feeding [Unknown]
